FAERS Safety Report 6400724-0 (Version None)
Quarter: 2009Q4

REPORT INFORMATION
  Report Type: 
  Country: None (occurrence: None)
  Receive Date: 20091014
  Receipt Date: 20091007
  Transmission Date: 20100525
  Serious: Yes (Other)
  Sender: FDA-Public Use
  Company Number: US-GENENTECH-292141

PATIENT
  Age: 33 Year
  Sex: Female

DRUGS (2)
  1. XOLAIR [Suspect]
     Indication: ASTHMA
     Dosage: 300 MG, 1/MONTH
     Route: 058
     Dates: start: 20080616
  2. IMMUNOTHERAPY (ALLERGEN UNKNOWN) [Suspect]
     Indication: HYPERSENSITIVITY

REACTIONS (1)
  - ANAPHYLACTIC REACTION [None]
